FAERS Safety Report 9196903 (Version 1)
Quarter: 2013Q1

REPORT INFORMATION
  Report Type: Spontaneous
  Country: FR (occurrence: FR)
  Receive Date: 20130328
  Receipt Date: 20130328
  Transmission Date: 20140127
  Serious: Yes (Hospitalization)
  Sender: FDA-Public Use
  Company Number: FR-PFIZER INC-2013097171

PATIENT
  Age: 53 Year
  Sex: Female

DRUGS (5)
  1. LYRICA [Suspect]
     Indication: DIABETIC NEUROPATHY
     Dosage: 25 MG, 1X/DAY
     Route: 048
     Dates: start: 201006, end: 20121226
  2. LANTUS [Concomitant]
     Dosage: UNK
     Route: 058
  3. AMAREL [Concomitant]
     Dosage: 6 MG, UNK
  4. LEVOTHYROX [Concomitant]
     Dosage: 200 UG, UNK
  5. GARDENAL ^AVENTIS^ [Concomitant]
     Dosage: UNK

REACTIONS (3)
  - Fatigue [Recovered/Resolved]
  - Aggression [Recovered/Resolved]
  - Major depression [Recovered/Resolved]
